FAERS Safety Report 7544770-2 (Version None)
Quarter: 2011Q2

REPORT INFORMATION
  Report Type: 
  Country: None (occurrence: None)
  Receive Date: 20110614
  Receipt Date: 20110523
  Transmission Date: 20111010
  Serious: Yes (Other)
  Sender: FDA-Public Use
  Company Number: US-BAYER-201032259NA

PATIENT
  Age: 59 Year
  Sex: Male
  Weight: 99.773 kg

DRUGS (32)
  1. PROHANCE [Suspect]
     Indication: NUCLEAR MAGNETIC RESONANCE IMAGING
  2. IRON SUPPLEMENT [Concomitant]
  3. RYTHMOL [Concomitant]
  4. DIOVAN [Concomitant]
  5. OMNISCAN [Suspect]
     Indication: NUCLEAR MAGNETIC RESONANCE IMAGING BRAIN
     Dosage: 40 ML, ONCE
     Route: 042
     Dates: start: 20060330, end: 20060330
  6. GADOLINIUM IN UNSPECIFIED DRUG [Suspect]
     Indication: NUCLEAR MAGNETIC RESONANCE IMAGING BRAIN
     Dosage: UNK
     Dates: start: 19960906, end: 19960906
  7. OPTIMARK [Suspect]
     Indication: NUCLEAR MAGNETIC RESONANCE IMAGING
  8. NEPHROCAPS [Concomitant]
  9. ERGOCALCIFEROL [Concomitant]
  10. FOSRENOL [Concomitant]
  11. GADOLINIUM IN UNSPECIFIED DRUG [Suspect]
     Indication: ANGIOGRAM
     Dosage: UNK
     Dates: start: 20030711, end: 20030711
  12. PHOSLO [Concomitant]
  13. METOPROLOL SUCCINATE [Concomitant]
  14. CARDIZEM [Concomitant]
  15. OMNISCAN [Suspect]
     Indication: NUCLEAR MAGNETIC RESONANCE IMAGING
     Dosage: 20 ML, ONCE
     Route: 042
     Dates: start: 20060512, end: 20060512
  16. PREDNISONE [Concomitant]
  17. CARDURA [Concomitant]
  18. HECTOROL [Concomitant]
  19. MAGNEVIST [Suspect]
     Indication: NUCLEAR MAGNETIC RESONANCE IMAGING
  20. GADOLINIUM IN UNSPECIFIED DRUG [Suspect]
     Dosage: UNK
     Dates: start: 20030703, end: 20030703
  21. NPH INSULIN [Concomitant]
  22. FLUCONAZOLE [Concomitant]
  23. GADOLINIUM IN UNSPECIFIED DRUG [Suspect]
     Dosage: UNK
     Dates: start: 20041229, end: 20041229
  24. ESOMEPRAZOLE MAGNESIUM [Concomitant]
  25. ACYCLOVIR [Concomitant]
  26. ENBREL [Concomitant]
  27. INDERAL [Concomitant]
  28. MULTIHANCE [Suspect]
     Indication: NUCLEAR MAGNETIC RESONANCE IMAGING
  29. EPOGEN [Concomitant]
  30. QUININE SULFATE [Concomitant]
  31. MIDODRINE HYDROCHLORIDE [Concomitant]
  32. VENOFER [Concomitant]

REACTIONS (16)
  - NEPHROGENIC SYSTEMIC FIBROSIS [None]
  - GAIT DISTURBANCE [None]
  - ERYTHEMA [None]
  - RASH [None]
  - MUSCULOSKELETAL STIFFNESS [None]
  - SCLERODERMA [None]
  - SUBCUTANEOUS NODULE [None]
  - PAIN [None]
  - MOBILITY DECREASED [None]
  - PLEURAL FIBROSIS [None]
  - ARTHRALGIA [None]
  - SKIN TIGHTNESS [None]
  - SKIN INDURATION [None]
  - SKIN HYPERPIGMENTATION [None]
  - HYPOAESTHESIA [None]
  - SKIN PLAQUE [None]
